FAERS Safety Report 6842235-4 (Version None)
Quarter: 2010Q3

REPORT INFORMATION
  Report Type: 
  Country: None (occurrence: None)
  Receive Date: 20100709
  Receipt Date: 20100621
  Transmission Date: 20110219
  Serious: Yes (Hospitalization, Other)
  Sender: FDA-Public Use
  Company Number: 2010SP035030

PATIENT
  Age: 74 Year
  Sex: Female

DRUGS (10)
  1. REMERON [Suspect]
     Indication: DEPRESSIVE SYMPTOM
     Dosage: ; QD; PO
     Route: 048
     Dates: start: 20100307, end: 20100409
  2. ARCOXIA [Suspect]
     Indication: MUSCULOSKELETAL PAIN
     Dosage: 90 MG; QD; PO
     Route: 048
     Dates: start: 20100319, end: 20100322
  3. ARCOXIA [Suspect]
     Indication: MUSCULOSKELETAL PAIN
     Dosage: 90 MG; QD; PO
     Route: 048
     Dates: start: 20100325, end: 20100408
  4. ASPIRIN [Concomitant]
  5. PANTOZOL /01263202/ [Concomitant]
  6. PLAVIX [Concomitant]
  7. METOPROLOL SUCCINATE [Concomitant]
  8. CRESTOR [Concomitant]
  9. VENLAFAXINE HCL [Concomitant]
  10. NULYTELY [Concomitant]

REACTIONS (1)
  - HEPATITIS ACUTE [None]
